FAERS Safety Report 7008004-X (Version None)
Quarter: 2010Q3

REPORT INFORMATION
  Report Type: 
  Country: None (occurrence: None)
  Receive Date: 20100922
  Receipt Date: 20100916
  Transmission Date: 20110219
  Serious: Yes (Death, Life-Threatening)
  Sender: FDA-Public Use
  Company Number: US-ELI_LILLY_AND_COMPANY-US201008003136

PATIENT
  Sex: Male
  Weight: 95.238 kg

DRUGS (3)
  1. PRASUGREL HYDROCHLORIDE [Suspect]
     Indication: ACUTE CORONARY SYNDROME
     Dosage: 60 MG, OTHER
     Dates: start: 20100731
  2. PRASUGREL HYDROCHLORIDE [Suspect]
     Dosage: 10 MG, UNK
     Dates: start: 20100805
  3. ASPIRIN [Concomitant]
     Indication: ACUTE CORONARY SYNDROME
     Dosage: 325 MG, DAILY (1/D)
     Dates: start: 20100805

REACTIONS (1)
  - CARDIAC ARREST [None]
